FAERS Safety Report 9542217 (Version 1)
Quarter: 2013Q3

REPORT INFORMATION
  Report Type: Spontaneous
  Country: US (occurrence: None)
  Receive Date: 20130918
  Receipt Date: 20130918
  Transmission Date: 20140515
  Serious: No
  Sender: FDA-Public Use
  Company Number: 2013CT000058

PATIENT
  Age: 66 Year
  Sex: Female

DRUGS (7)
  1. KORLYM [Suspect]
     Indication: CUSHING^S SYNDROME
     Route: 048
  2. SYNTHROID [Concomitant]
  3. CELEXA [Concomitant]
  4. ATIVAN [Concomitant]
  5. BLOOD PRESSURE MEDICINES [Concomitant]
  6. CALCIUM [Concomitant]
  7. VITAMIN D [Concomitant]

REACTIONS (4)
  - Musculoskeletal stiffness [None]
  - Pain [None]
  - Burning sensation [None]
  - Incorrect dose administered [None]
